FAERS Safety Report 10902681 (Version 14)
Quarter: 2018Q2

REPORT INFORMATION
  Report Type: Report from Study
  Country: US (occurrence: US)
  Receive Date: 20150310
  Receipt Date: 20180626
  Transmission Date: 20180711
  Serious: Yes (Death, Hospitalization, Other)
  Sender: FDA-Public Use
  Company Number: US-ACTELION-A-NJ2015-111302

PATIENT
  Age: 71 Year
  Sex: Male
  Weight: 83.9 kg

DRUGS (8)
  1. REVATIO [Concomitant]
     Active Substance: SILDENAFIL CITRATE
  2. TYVASO [Suspect]
     Active Substance: TREPROSTINIL
     Indication: PULMONARY ARTERIAL HYPERTENSION
     Route: 065
  3. COUMADIN [Concomitant]
     Active Substance: WARFARIN SODIUM
  4. ASPIRIN. [Concomitant]
     Active Substance: ASPIRIN
  5. AMLODIPINE [Concomitant]
     Active Substance: AMLODIPINE BESYLATE
  6. TRACLEER [Suspect]
     Active Substance: BOSENTAN
     Indication: PULMONARY ARTERIAL HYPERTENSION
     Dosage: 125 MG, BID
     Route: 048
     Dates: start: 20111102
  7. TRACLEER [Suspect]
     Active Substance: BOSENTAN
     Dosage: 125 MG, BID
     Route: 048
  8. REMODULIN [Concomitant]
     Active Substance: TREPROSTINIL

REACTIONS (20)
  - Death [Fatal]
  - Dyspnoea [Unknown]
  - Fatigue [Unknown]
  - Sputum discoloured [Recovering/Resolving]
  - Catheter site haemorrhage [Unknown]
  - Blood creatinine abnormal [Unknown]
  - Pericardial effusion [Unknown]
  - Erythema [Unknown]
  - Abdominal distension [Unknown]
  - Bladder disorder [Unknown]
  - Catheter site discharge [Unknown]
  - Urinary bladder haemorrhage [Unknown]
  - Cardiac failure [Unknown]
  - Decreased appetite [Unknown]
  - Cough [Recovering/Resolving]
  - Catheter site discolouration [Unknown]
  - Acute kidney injury [Unknown]
  - Fluid retention [Unknown]
  - Diarrhoea [Unknown]
  - Suture rupture [Unknown]

NARRATIVE: CASE EVENT DATE: 20170510
